FAERS Safety Report 25945679 (Version 2)
Quarter: 2025Q4

REPORT INFORMATION
  Report Type: Spontaneous
  Country: CN (occurrence: CN)
  Receive Date: 20251021
  Receipt Date: 20251023
  Transmission Date: 20260118
  Serious: Yes (Hospitalization, Other)
  Sender: MERCK SHARP & DOHME LLC
  Company Number: CN-009507513-2338318

PATIENT
  Age: 63 Year
  Sex: Female
  Weight: 51 kg

DRUGS (4)
  1. STEGLATRO [Suspect]
     Active Substance: ERTUGLIFLOZIN PIDOLATE
     Indication: Diabetes mellitus
     Route: 048
     Dates: start: 20240226, end: 20250925
  2. METFORMIN HYDROCHLORIDE\SITAGLIPTIN PHOSPHATE [Suspect]
     Active Substance: METFORMIN HYDROCHLORIDE\SITAGLIPTIN PHOSPHATE
     Indication: Diabetes mellitus
     Route: 048
     Dates: start: 20240226, end: 20250925
  3. METFORMIN HYDROCHLORIDE\SITAGLIPTIN PHOSPHATE [Suspect]
     Active Substance: METFORMIN HYDROCHLORIDE\SITAGLIPTIN PHOSPHATE
     Indication: Diabetes mellitus
     Route: 048
     Dates: start: 20250925
  4. adalat nifedipine GITS [Concomitant]
     Indication: Hypertension
     Route: 048
     Dates: start: 20240226, end: 20250929

REACTIONS (15)
  - Escherichia pyelonephritis [Recovering/Resolving]
  - Paranasal sinus inflammation [Unknown]
  - Gait disturbance [Recovering/Resolving]
  - Cerebral atrophy [Unknown]
  - Intervertebral disc protrusion [Unknown]
  - Cholecystitis [Unknown]
  - Arteriosclerosis [Unknown]
  - Pneumonitis [Unknown]
  - Muscular weakness [Recovered/Resolved]
  - Spinal osteoarthritis [Unknown]
  - Renal cyst [Unknown]
  - Computerised tomogram liver abnormal [Unknown]
  - Hyperplastic cholecystopathy [Unknown]
  - Computerised tomogram head abnormal [Unknown]
  - Inappropriate schedule of product administration [Unknown]

NARRATIVE: CASE EVENT DATE: 20240226
